FAERS Safety Report 20206834 (Version 1)
Quarter: 2021Q4

REPORT INFORMATION
  Report Type: Spontaneous
  Country: US (occurrence: US)
  Receive Date: 20211220
  Receipt Date: 20211220
  Transmission Date: 20220303
  Serious: Yes (Other)
  Sender: FDA-Public Use
  Company Number: US-SEBELA IRELAND LIMITED-2021SEB00134

PATIENT
  Age: 65 Year
  Sex: Male
  Weight: 104.31 kg

DRUGS (3)
  1. NAFTIN [Suspect]
     Active Substance: NAFTIFINE HYDROCHLORIDE
     Indication: Tinea pedis
     Dosage: 2 SAMPLE PACKETS FOR THE FIRST 10 DAYS
     Route: 048
     Dates: start: 20211101, end: 20211110
  2. NAFTIN [Suspect]
     Active Substance: NAFTIFINE HYDROCHLORIDE
     Indication: Pruritus
     Dosage: ^2 MG^ APPLIED TO HIS FOOT/TOES, 2 OR 3 TIMES A DAY
     Route: 061
     Dates: start: 20211111, end: 20211111
  3. COPAXONE [Concomitant]
     Active Substance: GLATIRAMER ACETATE

REACTIONS (2)
  - Cellulitis [Recovering/Resolving]
  - Pruritus [Recovering/Resolving]

NARRATIVE: CASE EVENT DATE: 20211108
